FAERS Safety Report 13536299 (Version 2)
Quarter: 2017Q2

REPORT INFORMATION
  Report Type: Spontaneous
  Country: MY (occurrence: MY)
  Receive Date: 20170511
  Receipt Date: 20170516
  Transmission Date: 20170830
  Serious: Yes (Other)
  Sender: FDA-Public Use
  Company Number: MY-UCBSA-2017017691

PATIENT
  Sex: Female

DRUGS (3)
  1. G-CSF [Concomitant]
     Active Substance: GRANULOCYTE COLONY-STIMULATING FACTOR NOS
     Indication: PRODUCT USED FOR UNKNOWN INDICATION
     Dosage: UNK
     Dates: start: 2017, end: 20170505
  2. MTX [Concomitant]
     Active Substance: METHOTREXATE SODIUM
     Indication: PRODUCT USED FOR UNKNOWN INDICATION
     Dosage: UNK
  3. CIMZIA [Suspect]
     Active Substance: CERTOLIZUMAB PEGOL
     Indication: PRODUCT USED FOR UNKNOWN INDICATION
     Dosage: UNK
     Route: 058
     Dates: start: 20170413, end: 20170413

REACTIONS (4)
  - Agranulocytosis [Recovering/Resolving]
  - Oral candidiasis [Not Recovered/Not Resolved]
  - Pancytopenia [Recovering/Resolving]
  - Osteomyelitis [Unknown]

NARRATIVE: CASE EVENT DATE: 2017
